FAERS Safety Report 16897699 (Version 1)
Quarter: 2019Q4

REPORT INFORMATION
  Report Type: Spontaneous
  Country: JP (occurrence: JP)
  Receive Date: 20191009
  Receipt Date: 20191009
  Transmission Date: 20200122
  Serious: Yes (Hospitalization, Other)
  Sender: FDA-Public Use
  Company Number: JP-AMGEN-JPNSP2019164671

PATIENT
  Age: 71 Year
  Sex: Female

DRUGS (11)
  1. ZOLPIDEM TARTRATE. [Concomitant]
     Active Substance: ZOLPIDEM TARTRATE
  2. ALFACALCIDOL [Concomitant]
     Active Substance: ALFACALCIDOL
  3. SODIUM CITRATE. [Concomitant]
     Active Substance: SODIUM CITRATE
  4. CARERAM [Concomitant]
     Active Substance: IGURATIMOD
  5. METHOTREXATE. [Concomitant]
     Active Substance: METHOTREXATE
  6. EVENITY [Suspect]
     Active Substance: ROMOSOZUMAB-AQQG
     Indication: OSTEOPOROSIS
     Dosage: 210 MILLIGRAM
     Route: 058
     Dates: start: 20190723, end: 20190723
  7. RABEPRAZOLE SODIUM. [Concomitant]
     Active Substance: RABEPRAZOLE SODIUM
  8. CALCIUM L-ASPARTATE [Concomitant]
  9. ACETAMINOPHEN. [Concomitant]
     Active Substance: ACETAMINOPHEN
  10. FOLIAMIN [Concomitant]
     Active Substance: FOLIC ACID
  11. PREDONINE [Concomitant]
     Active Substance: PREDNISOLONE

REACTIONS (1)
  - Colon cancer [Recovered/Resolved]

NARRATIVE: CASE EVENT DATE: 20190906
